FAERS Safety Report 9609667 (Version 1)
Quarter: 2013Q4

REPORT INFORMATION
  Report Type: Spontaneous
  Country: US (occurrence: None)
  Receive Date: 20131008
  Receipt Date: 20131008
  Transmission Date: 20140711
  Serious: Yes (Other)
  Sender: FDA-Public Use
  Company Number: None

PATIENT
  Age: 52 Year
  Sex: Male
  Weight: 106.6 kg

DRUGS (13)
  1. RIVAROXABAN [Suspect]
     Indication: DEEP VEIN THROMBOSIS
  2. RIVAROXABAN [Suspect]
     Indication: PULMONARY EMBOLISM
  3. RAMIPRIL [Concomitant]
  4. FLEXERIL [Concomitant]
  5. GABAPENTIN [Concomitant]
  6. HCTZ [Concomitant]
  7. HYDROCODONE/APAP [Concomitant]
  8. LANTUS [Concomitant]
  9. LIPITOR [Concomitant]
  10. METHADONE [Concomitant]
  11. OMEPRAZOLE [Concomitant]
  12. POTASSIUM [Concomitant]
  13. ZOLPIDEM [Concomitant]

REACTIONS (3)
  - Myalgia [None]
  - Fatigue [None]
  - Asthenia [None]
